FAERS Safety Report 5152077-6 (Version None)
Quarter: 2006Q4

REPORT INFORMATION
  Report Type: 
  Country: None (occurrence: None)
  Receive Date: 20061116
  Receipt Date: 20061103
  Transmission Date: 20070319
  Serious: Yes (Other)
  Sender: FDA-Public Use
  Company Number: US-PURDUE-USA_2006_0025630

PATIENT
  Sex: Female

DRUGS (4)
  1. OXYCODONE HYDROCHLORIDE [Suspect]
     Indication: CANCER PAIN
     Dosage: 15 MG, SEE TEXT
     Dates: start: 20060101
  2. OXYCODONE HYDROCHLORIDE [Suspect]
     Dosage: 5 MG, PRN
     Route: 048
     Dates: start: 20060101
  3. ACTIQ [Concomitant]
     Indication: CANCER PAIN
     Dosage: 2 OTHER, DAILY
  4. OXYCONTIN [Concomitant]
     Indication: CANCER PAIN
     Dosage: UNK, BID

REACTIONS (14)
  - ANXIETY [None]
  - CHEST DISCOMFORT [None]
  - DRUG DEPENDENCE [None]
  - FRUSTRATION [None]
  - MOOD ALTERED [None]
  - NERVOUSNESS [None]
  - PAIN [None]
  - PYREXIA [None]
  - RESTLESSNESS [None]
  - SCREAMING [None]
  - SEDATION [None]
  - SOMNOLENCE [None]
  - SUICIDAL IDEATION [None]
  - THINKING ABNORMAL [None]
